FAERS Safety Report 6385715-0 (Version None)
Quarter: 2009Q4

REPORT INFORMATION
  Report Type: 
  Country: None (occurrence: None)
  Receive Date: 20091002
  Receipt Date: 20080929
  Transmission Date: 20100525
  Serious: Yes (Other)
  Sender: FDA-Public Use
  Company Number: US-ASTRAZENECA-2008UW21221

PATIENT
  Age: 79 Year
  Sex: Female
  Weight: 77.1 kg

DRUGS (3)
  1. ARIMIDEX [Suspect]
     Indication: BREAST CANCER
     Route: 048
     Dates: start: 20080501
  2. LISINOPRIL [Concomitant]
  3. LIPITOR [Concomitant]

REACTIONS (1)
  - HIP FRACTURE [None]
